FAERS Safety Report 10510017 (Version 1)
Quarter: 2014Q4

REPORT INFORMATION
  Report Type: Spontaneous
  Country: US (occurrence: None)
  Receive Date: 20141008
  Receipt Date: 20141008
  Transmission Date: 20150528
  Serious: Yes (Other)
  Sender: FDA-Public Use
  Company Number: VAL_03411_2014

PATIENT
  Sex: Male

DRUGS (16)
  1. COLACE (UNKNOWN) [Concomitant]
  2. MIRALAX /00754501/ (UNKNOWN) [Concomitant]
  3. PYRIDOXINE (UNKNOWN) [Concomitant]
     Active Substance: PYRIDOXINE
  4. RESOURCE BREEZE (UNKNOWN) [Concomitant]
  5. CALCITROL [Suspect]
     Active Substance: CALCITRIOL
     Indication: PRODUCT USED FOR UNKNOWN INDICATION
     Route: 048
  6. FERROUS SULFATE (UNKNOWN, UNKNOWN) [Concomitant]
  7. RENVELA (UNKNOWN) [Concomitant]
  8. CALCIUM CARBONATE (UNKNOWN) [Concomitant]
     Active Substance: CALCIUM CARBONATE
  9. ARANESP (UNKNOWN) [Concomitant]
  10. CYSTEAMINE /00492501/ (UNKNOWN) [Concomitant]
  11. ENALAPRIL (UNKNOWN) [Concomitant]
     Active Substance: ENALAPRIL
  12. SOMATROPIN [Suspect]
     Active Substance: SOMATROPIN
     Indication: CHRONIC KIDNEY DISEASE
     Route: 058
  13. ERGOCALCIFEROL (UNKNOWN) [Concomitant]
  14. SUPLENA (UNKNOWN) [Concomitant]
  15. ISONIAZIDE (02/13/2012 TO UNKNOWN) [Concomitant]
  16. BACTROBAN /00753901/ (UNKNOWN) [Concomitant]

REACTIONS (10)
  - Drug dose omission [None]
  - Haemoglobin decreased [None]
  - Vitamin D decreased [None]
  - Application site infection [None]
  - Blood pressure increased [None]
  - Scab [None]
  - Application site reaction [None]
  - Fluid overload [None]
  - Hyperparathyroidism [None]
  - Application site erythema [None]
